FAERS Safety Report 12587051 (Version 1)
Quarter: 2016Q3

REPORT INFORMATION
  Report Type: Spontaneous
  Country: US (occurrence: None)
  Receive Date: 20160722
  Receipt Date: 20160722
  Transmission Date: 20161109
  Serious: No
  Sender: FDA-Public Use
  Company Number: None

PATIENT
  Age: 64 Year
  Sex: Male

DRUGS (2)
  1. SOVALDI [Suspect]
     Active Substance: SOFOSBUVIR
  2. DAKLINZA [Suspect]
     Active Substance: DACLATASVIR

REACTIONS (1)
  - Insomnia [None]

NARRATIVE: CASE EVENT DATE: 20160721
